FAERS Safety Report 14181510 (Version 2)
Quarter: 2018Q1

REPORT INFORMATION
  Report Type: Spontaneous
  Country: JP (occurrence: JP)
  Receive Date: 20171112
  Receipt Date: 20180329
  Transmission Date: 20180508
  Serious: Yes (Hospitalization, Other)
  Sender: FDA-Public Use
  Company Number: JP-MYLANLABS-2017M1069507

PATIENT
  Age: 58 Year
  Sex: Female
  Weight: 40 kg

DRUGS (16)
  1. SODIUM CROMOGLICATE [Suspect]
     Active Substance: CROMOLYN SODIUM
     Indication: ASTHMA
     Route: 055
  2. ETIZOLAM [Suspect]
     Active Substance: ETIZOLAM
     Indication: PRODUCT USED FOR UNKNOWN INDICATION
     Dosage: 0.5 MG, QD
     Route: 048
  3. PROCATEROL [Suspect]
     Active Substance: PROCATEROL HYDROCHLORIDE
     Indication: ASTHMA
     Dosage: 10 ?G, PRN
     Route: 055
  4. PREDNISOLONE. [Suspect]
     Active Substance: PREDNISOLONE
     Indication: ASTHMA
     Dosage: 20 MG, QD
     Route: 048
  5. CHLORPHENAMINE MALEATE/DIHYDROCODEINE PHOSPHATE/METHYLEPHEDRINE HYDROCHLORIDE-DL [Suspect]
     Active Substance: CHLORPHENIRAMINE MALEATE\DIHYDROCODEINE PHOSPHATE\METHYLEPHEDRINE HYDROCHLORIDE, (+/-)-
     Indication: OXYGEN SATURATION DECREASED
     Dosage: 3 DF, QD
     Route: 048
  6. BUDESONIDE/FORMOTEROL FUMARATE [Suspect]
     Active Substance: BUDESONIDE\FORMOTEROL FUMARATE
     Indication: ASTHMA
     Route: 055
  7. REBAMIPIDE [Suspect]
     Active Substance: REBAMIPIDE
     Indication: PRODUCT USED FOR UNKNOWN INDICATION
     Dosage: 300 MG, QD
     Route: 048
  8. ROSUVASTATIN. [Suspect]
     Active Substance: ROSUVASTATIN
     Indication: PRODUCT USED FOR UNKNOWN INDICATION
     Dosage: 5 MG, QD
     Route: 048
  9. LANSOPRAZOLE. [Suspect]
     Active Substance: LANSOPRAZOLE
     Indication: ASTHMA
     Dosage: 15 MG, QD
     Route: 048
  10. AMPICILLIN/SULBACTAM [Suspect]
     Active Substance: AMPICILLIN SODIUM\SULBACTAM SODIUM
     Indication: ASTHMA
     Dosage: 6 G, QD
     Route: 065
  11. CALONAL [Suspect]
     Active Substance: ACETAMINOPHEN
     Indication: OXYGEN SATURATION DECREASED
     Dosage: 400 MG, ONCE
     Route: 065
  12. LORATADINE. [Suspect]
     Active Substance: LORATADINE
     Indication: OXYGEN SATURATION DECREASED
     Dosage: 10 MG, QD
     Route: 065
  13. METHYLPREDNISOLONE. [Suspect]
     Active Substance: METHYLPREDNISOLONE
     Indication: ASTHMA
     Dosage: 125 MG, QD
     Route: 042
  14. PROCATEROL [Suspect]
     Active Substance: PROCATEROL HYDROCHLORIDE
     Indication: ASTHMA
     Dosage: 0.3 ML, PRN
     Route: 055
  15. MONTELUKAST [Suspect]
     Active Substance: MONTELUKAST SODIUM
     Indication: ASTHMA
     Dosage: 10 MG, QD
     Route: 048
  16. SITAFLOXACIN [Suspect]
     Active Substance: SITAFLOXACIN
     Indication: OXYGEN SATURATION DECREASED
     Dosage: 100 MG, QD
     Route: 065

REACTIONS (2)
  - Drug-induced liver injury [Recovering/Resolving]
  - Eosinophil count increased [Unknown]
